FAERS Safety Report 11191395 (Version 1)
Quarter: 2015Q2

REPORT INFORMATION
  Report Type: Report from Study
  Country: CA (occurrence: CA)
  Receive Date: 20150616
  Receipt Date: 20150616
  Transmission Date: 20150821
  Serious: Yes (Other)
  Sender: FDA-Public Use
  Company Number: PHHY2015CA056365

PATIENT
  Sex: Female

DRUGS (1)
  1. GLEEVEC [Suspect]
     Active Substance: IMATINIB MESYLATE
     Indication: GASTROINTESTINAL STROMAL TUMOUR
     Dosage: 400 MG, QD
     Route: 048
     Dates: start: 20150415

REACTIONS (6)
  - Polyglandular disorder [Unknown]
  - Generalised oedema [Unknown]
  - Face oedema [Unknown]
  - Photosensitivity reaction [Unknown]
  - Eye swelling [Unknown]
  - Oedema peripheral [Unknown]
